FAERS Safety Report 17157103 (Version 2)
Quarter: 2019Q4

REPORT INFORMATION
  Report Type: Report from Study
  Country: US (occurrence: US)
  Receive Date: 20191216
  Receipt Date: 20191220
  Transmission Date: 20200122
  Serious: Yes (Other)
  Sender: FDA-Public Use
  Company Number: US-HORIZON-KRY-1162-2019

PATIENT
  Age: 43 Year
  Sex: Male

DRUGS (4)
  1. SOLU-CORTEF [Concomitant]
     Active Substance: HYDROCORTISONE SODIUM SUCCINATE
     Indication: PREMEDICATION
     Dosage: 200 MG IVP
     Route: 042
  2. BENADRYL [Concomitant]
     Active Substance: DIPHENHYDRAMINE HYDROCHLORIDE
     Indication: PREMEDICATION
     Dosage: 50 MG PO
     Route: 048
  3. KRYSTEXXA [Suspect]
     Active Substance: PEGLOTICASE
     Indication: GOUT
     Dosage: 8MG EVERY 2 WEEKS
     Route: 042
     Dates: start: 20190919, end: 20191114
  4. TYLENOL [Concomitant]
     Active Substance: ACETAMINOPHEN
     Indication: PREMEDICATION
     Dosage: 650 MG PO
     Route: 048

REACTIONS (2)
  - Infusion related reaction [Recovered/Resolved]
  - Therapeutic response decreased [Unknown]

NARRATIVE: CASE EVENT DATE: 20191202
